FAERS Safety Report 20348143 (Version 1)
Quarter: 2022Q1

REPORT INFORMATION
  Report Type: Other
  Country: NL (occurrence: NL)
  Receive Date: 20220119
  Receipt Date: 20220119
  Transmission Date: 20220424
  Serious: Yes (Life-Threatening, Hospitalization, Disabling, Other)
  Sender: FDA-Public Use
  Company Number: NL-CELLTRION INC.-2022NL000467

PATIENT

DRUGS (18)
  1. RITUXIMAB [Suspect]
     Active Substance: RITUXIMAB
     Indication: Product used for unknown indication
     Dosage: UNK
     Dates: start: 20210219, end: 2021
  2. RITUXIMAB [Suspect]
     Active Substance: RITUXIMAB
     Dosage: 375 MG/M2 (ONCE EVERY 3 WEEKS) - (REGIMEN: 1)
     Route: 042
     Dates: start: 20210802, end: 20210802
  3. CARBOPLATIN [Suspect]
     Active Substance: CARBOPLATIN
     Indication: Product used for unknown indication
     Dosage: 5 AUC, ONCE EVERY 3 WEEKS (REGIMEN: 1)
     Route: 042
     Dates: start: 20210803, end: 20210803
  4. CYTARABINE [Suspect]
     Active Substance: CYTARABINE
     Indication: Product used for unknown indication
     Dosage: 2000 MG/M2, 1Q3W (REGIMEN:1)
     Route: 042
     Dates: start: 20210803, end: 20210804
  5. CYTARABINE [Suspect]
     Active Substance: CYTARABINE
     Dosage: 2000 MG/M2, 1Q3W (REGIMEN:1)
     Route: 042
     Dates: start: 20210803, end: 20210803
  6. DEXAMETHASONE [Suspect]
     Active Substance: DEXAMETHASONE
     Indication: Product used for unknown indication
     Dosage: UNK (REGIMEN: 1)
     Dates: start: 20210802, end: 20210805
  7. EPCORITAMAB [Suspect]
     Active Substance: EPCORITAMAB
     Indication: Product used for unknown indication
     Dosage: 0.16 MG, SINGLE (REGIMEN: 1)
     Route: 058
     Dates: start: 20210802, end: 20210802
  8. EPCORITAMAB [Suspect]
     Active Substance: EPCORITAMAB
     Dosage: 0.8 MG, SINGLE (REGIMEN: 1)
     Route: 058
     Dates: start: 20210809, end: 20210809
  9. CLEMASTINE [Concomitant]
     Active Substance: CLEMASTINE
     Dosage: UNK
     Dates: start: 20210802, end: 20210809
  10. CLEMASTINE [Concomitant]
     Active Substance: CLEMASTINE
     Dosage: UNK
     Dates: start: 20210809, end: 20210809
  11. HYPROMELLOSES [Concomitant]
     Active Substance: HYPROMELLOSES
     Dosage: UNK
     Dates: start: 20210803, end: 20210805
  12. HYPROMELLOSE PHTHALATE [Concomitant]
     Active Substance: HYPROMELLOSE PHTHALATE
     Dosage: UNK
     Dates: start: 20210803, end: 20210805
  13. MAGNESIUMSULFAAT [Concomitant]
     Dosage: UNK, 3X/DAY
     Dates: start: 20210802, end: 20210804
  14. ONDANSETRON [Concomitant]
     Active Substance: ONDANSETRON
     Dosage: UNK
     Dates: start: 20210802, end: 20210805
  15. ACETAMINOPHEN [Concomitant]
     Active Substance: ACETAMINOPHEN
     Dosage: UNK
     Dates: start: 20210802, end: 20210809
  16. ACETAMINOPHEN [Concomitant]
     Active Substance: ACETAMINOPHEN
     Dosage: UNK
     Dates: start: 20210809, end: 20210809
  17. PREDNISOLONE [Concomitant]
     Active Substance: PREDNISOLONE
     Dosage: UNK
     Dates: start: 20210802, end: 20210818
  18. RASBURICASE [Concomitant]
     Active Substance: RASBURICASE
     Dosage: UNK
     Dates: start: 20210802, end: 20210804

REACTIONS (3)
  - Guillain-Barre syndrome [Recovering/Resolving]
  - Quadriparesis [Not Recovered/Not Resolved]
  - Respiratory failure [Unknown]

NARRATIVE: CASE EVENT DATE: 20210810
